FAERS Safety Report 5794197-9 (Version None)
Quarter: 2008Q2

REPORT INFORMATION
  Report Type: 
  Country: None (occurrence: None)
  Receive Date: 20080625
  Receipt Date: 20080617
  Transmission Date: 20081010
  Serious: Yes (Disabling, Other)
  Sender: FDA-Public Use
  Company Number: 2008011029

PATIENT
  Age: 52 Year
  Sex: Female
  Weight: 83.0083 kg

DRUGS (3)
  1. NEOSPORIN [Suspect]
     Indication: POSTOPERATIVE CARE
     Dosage: SLIGHT, SEVERAL TIMES; TOPICAL
     Route: 061
     Dates: start: 20080212, end: 20080214
  2. PREDNISONE TAB [Concomitant]
  3. DIPHENHYDRAMINE HCL [Concomitant]

REACTIONS (4)
  - APHASIA [None]
  - BURNING SENSATION [None]
  - CAUSTIC INJURY [None]
  - LIP SWELLING [None]
